FAERS Safety Report 20416527 (Version 3)
Quarter: 2022Q3

REPORT INFORMATION
  Report Type: Report from Study
  Country: CA (occurrence: CA)
  Receive Date: 20220202
  Receipt Date: 20220708
  Transmission Date: 20221026
  Serious: Yes (Other)
  Sender: FDA-Public Use
  Company Number: CA-NOVARTISPH-PHHY2018CA180850

PATIENT
  Age: 69 Year
  Sex: Male

DRUGS (6)
  1. COSENTYX [Suspect]
     Active Substance: SECUKINUMAB
     Indication: Ankylosing spondylitis
     Dosage: 150 MG, QW
     Route: 058
     Dates: start: 20011206
  2. COSENTYX [Suspect]
     Active Substance: SECUKINUMAB
     Dosage: 150 MG, QMO
     Route: 058
     Dates: start: 20181206
  3. METHOTREXATE [Concomitant]
     Active Substance: METHOTREXATE
     Indication: Product used for unknown indication
     Dosage: UNK, QW
     Route: 058
     Dates: start: 201711
  4. PREDNISONE [Concomitant]
     Active Substance: PREDNISONE
     Indication: Product used for unknown indication
     Dosage: UNK
     Route: 065
     Dates: start: 201603
  5. MELOXICAM [Concomitant]
     Active Substance: MELOXICAM
     Indication: Product used for unknown indication
     Dosage: 2 DOSAGE FORM, QD
     Route: 048
     Dates: start: 2017
  6. SULFASALAZINE [Concomitant]
     Active Substance: SULFASALAZINE
     Indication: Product used for unknown indication
     Dosage: 2 DOSAGE FORM, QD
     Route: 048
     Dates: start: 201802

REACTIONS (25)
  - Pulmonary fibrosis [Unknown]
  - Intervertebral disc degeneration [Unknown]
  - Exostosis [Unknown]
  - Device leakage [Unknown]
  - Back pain [Unknown]
  - Bone marrow oedema [Unknown]
  - Radiculopathy [Unknown]
  - Arthralgia [Unknown]
  - Granuloma [Unknown]
  - Oesophageal achalasia [Unknown]
  - Cyst [Unknown]
  - Inguinal hernia [Unknown]
  - Prostatomegaly [Unknown]
  - Intervertebral disc protrusion [Unknown]
  - Vertebral osteophyte [Unknown]
  - Spinal stenosis [Unknown]
  - Bone erosion [Unknown]
  - Joint ankylosis [Unknown]
  - Pulmonary mass [Unknown]
  - Lymph node calcification [Unknown]
  - Fatigue [Unknown]
  - Musculoskeletal stiffness [Unknown]
  - Tenderness [Unknown]
  - Discomfort [Unknown]
  - Incorrect dose administered [Unknown]

NARRATIVE: CASE EVENT DATE: 20210801
